FAERS Safety Report 17524715 (Version 1)
Quarter: 2020Q1

REPORT INFORMATION
  Report Type: Spontaneous
  Country: GB (occurrence: GB)
  Receive Date: 20200311
  Receipt Date: 20200311
  Transmission Date: 20200409
  Serious: Yes (Other)
  Sender: FDA-Public Use
  Company Number: GB-GLAXOSMITHKLINE-GB2020039639

PATIENT
  Age: 46 Year
  Sex: Male
  Weight: 76.2 kg

DRUGS (1)
  1. BECLOMETASONE DIPROPIONATE [Suspect]
     Active Substance: BECLOMETHASONE DIPROPIONATE
     Indication: RHINITIS ALLERGIC
     Dosage: 1-2 SPRAYS UP EACH NOSTRIL
     Route: 045
     Dates: start: 20191201, end: 20200121

REACTIONS (8)
  - Vertigo [Recovering/Resolving]
  - Tremor [Not Recovered/Not Resolved]
  - Panic attack [Unknown]
  - Pain [Unknown]
  - Dizziness [Recovering/Resolving]
  - Feeling abnormal [Unknown]
  - Heart rate increased [Recovering/Resolving]
  - Anxiety [Recovering/Resolving]

NARRATIVE: CASE EVENT DATE: 20191212
